FAERS Safety Report 7766679-1 (Version None)
Quarter: 2011Q3

REPORT INFORMATION
  Report Type: 
  Country: None (occurrence: None)
  Receive Date: 20110922
  Receipt Date: 20110910
  Transmission Date: 20111222
  Serious: Yes (Hospitalization)
  Sender: FDA-Public Use
  Company Number: US-BAYER-2011-085214

PATIENT
  Age: 50 Year
  Sex: Male

DRUGS (5)
  1. SORAFENIB (RAF KINASE INHIBITOR) [Suspect]
     Indication: HEPATIC NEOPLASM MALIGNANT
     Dosage: 400 MG, BID
     Route: 048
     Dates: start: 20110909, end: 20110911
  2. SORAFENIB (RAF KINASE INHIBITOR) [Suspect]
     Dosage: UNK
     Dates: start: 20110918
  3. MORPHINE [Concomitant]
     Dosage: 30 MG, BID
     Route: 048
  4. MORPHINE [Concomitant]
  5. OXYCODONE HCL [Concomitant]
     Dosage: 5 MG, PRN
     Route: 048

REACTIONS (9)
  - VOMITING [None]
  - FEAR [None]
  - PANIC REACTION [None]
  - ANXIETY [None]
  - HEPATIC PAIN [None]
  - ABDOMINAL PAIN [None]
  - CHILLS [None]
  - PYREXIA [None]
  - NERVOUSNESS [None]
